FAERS Safety Report 19807134 (Version 1)
Quarter: 2021Q3

REPORT INFORMATION
  Report Type: Spontaneous
  Country: US (occurrence: US)
  Receive Date: 20210907
  Receipt Date: 20210907
  Transmission Date: 20211014
  Serious: No
  Sender: FDA-Public Use
  Company Number: None

PATIENT
  Sex: Female

DRUGS (2)
  1. LEUPROLIDE ACET 2?WEEK [Suspect]
     Active Substance: LEUPROLIDE ACETATE
     Indication: INFERTILITY
     Dosage: ?          OTHER FREQUENCY:IN THE EVENING ;?
     Route: 058
     Dates: start: 202104
  2. CRINONE [Suspect]
     Active Substance: PROGESTERONE
     Indication: INFERTILITY
     Dosage: ?          OTHER DOSE:1 APPLICATION ;?
     Route: 067
     Dates: start: 202104

REACTIONS (1)
  - Drug ineffective [None]
